FAERS Safety Report 8859940 (Version 1)
Quarter: 2012Q4

REPORT INFORMATION
  Report Type: 
  Country: US (occurrence: US)
  Receive Date: 20121025
  Receipt Date: 20121025
  Transmission Date: 20130627
  Serious: Yes (Other)
  Sender: FDA-Public Use
  Company Number: US-BRISTOL-MYERS SQUIBB COMPANY-17043340

PATIENT
  Age: 57 Year
  Sex: Female
  Weight: 45 kg

DRUGS (2)
  1. ORENCIA [Suspect]
     Dosage: last inf:06Jul2012
     Route: 042
  2. METHOTREXATE [Suspect]

REACTIONS (3)
  - Pneumonia [Unknown]
  - Nephrolithiasis [Unknown]
  - Urinary tract infection [Unknown]
